FAERS Safety Report 20780312 (Version 2)
Quarter: 2022Q2

REPORT INFORMATION
  Report Type: Spontaneous
  Country: IN (occurrence: IN)
  Receive Date: 20220503
  Receipt Date: 20220509
  Transmission Date: 20220721
  Serious: Yes (Hospitalization, Other)
  Sender: FDA-Public Use
  Company Number: IN-SA-SAC20220428001586

PATIENT
  Age: 11 Year
  Sex: Female

DRUGS (2)
  1. APIDRA [Suspect]
     Active Substance: INSULIN GLULISINE
     Indication: Type 1 diabetes mellitus
     Dosage: TOTAL DOSE-81.4
     Dates: start: 20210815, end: 20220425
  2. NOVORAPID [Concomitant]
     Active Substance: INSULIN ASPART

REACTIONS (4)
  - Diabetic ketoacidosis [Recovering/Resolving]
  - Diabetes mellitus inadequate control [Recovering/Resolving]
  - Product physical issue [Unknown]
  - Liquid product physical issue [Unknown]

NARRATIVE: CASE EVENT DATE: 20220419
